FAERS Safety Report 14999140 (Version 2)
Quarter: 2018Q3

REPORT INFORMATION
  Report Type: Spontaneous
  Country: DE (occurrence: DE)
  Receive Date: 20180612
  Receipt Date: 20180713
  Transmission Date: 20181010
  Serious: Yes (Hospitalization)
  Sender: FDA-Public Use
  Company Number: DE-TEVA-2018-DE-904578

PATIENT
  Age: 78 Year
  Sex: Male

DRUGS (11)
  1. NITRENDIPINE [Suspect]
     Active Substance: NITRENDIPINE
     Dosage: NK MG, 0.5?0?0.5?0
     Route: 065
  2. METFORMIN [Concomitant]
     Active Substance: METFORMIN HYDROCHLORIDE
     Dosage: 1?1?1?0
     Route: 065
  3. BISOPROLOL [Suspect]
     Active Substance: BISOPROLOL
     Dosage: 2.5 MG, 0.5?0?0.5?0
     Route: 065
  4. ASS 100 [Concomitant]
     Active Substance: ASPIRIN
     Dosage: 100 MILLIGRAM DAILY; 0?1?0?0
     Route: 065
  5. TAMSULOSIN [Concomitant]
     Active Substance: TAMSULOSIN
     Dosage: 4 MILLIGRAM DAILY; 0.4 MG, 1?0?0?0
     Route: 065
  6. CLOMIPRAMINE [Suspect]
     Active Substance: CLOMIPRAMINE
     Dosage: 37 MILLIGRAM DAILY; 74 MG, 0.5?0?0.5?0
     Route: 065
  7. TORASEMID [Suspect]
     Active Substance: TORSEMIDE
     Dosage: 5 MILLIGRAM DAILY; 1?0?0?0
     Route: 048
  8. SIMVASTATIN. [Concomitant]
     Active Substance: SIMVASTATIN
     Dosage: 20 MILLIGRAM DAILY;  0?0?1?0
     Route: 065
  9. RAMIPRIL. [Suspect]
     Active Substance: RAMIPRIL
     Dosage: 10 MILLIGRAM DAILY; 5 MG, 1?0?0?1
     Route: 065
  10. RAMIPRIL. [Suspect]
     Active Substance: RAMIPRIL
     Dosage: 10 MILLIGRAM DAILY;
     Route: 048
  11. BISOPROLOL [Suspect]
     Active Substance: BISOPROLOL
     Dosage: 5 MILLIGRAM DAILY;
     Route: 065

REACTIONS (3)
  - Dizziness [Unknown]
  - Weight decreased [Unknown]
  - Syncope [Unknown]
